FAERS Safety Report 5811505-0 (Version None)
Quarter: 2008Q3

REPORT INFORMATION
  Report Type: 
  Country: None (occurrence: None)
  Receive Date: 20080711
  Receipt Date: 20080711
  Transmission Date: 20090109
  Serious: Yes (Other)
  Sender: FDA-Public Use
  Company Number: None

PATIENT
  Sex: Female
  Weight: 72.5755 kg

DRUGS (1)
  1. CRESTOR [Suspect]
     Indication: BLOOD CHOLESTEROL
     Dosage: 5MG ONE A DAY
     Dates: start: 20080430, end: 20080530

REACTIONS (4)
  - CONDITION AGGRAVATED [None]
  - FIBROMYALGIA [None]
  - MYALGIA [None]
  - RHEUMATOID ARTHRITIS [None]
